FAERS Safety Report 25637483 (Version 1)
Quarter: 2025Q3

REPORT INFORMATION
  Report Type: Other
  Country: TR (occurrence: TR)
  Receive Date: 20250804
  Receipt Date: 20250804
  Transmission Date: 20251020
  Serious: Yes (Other)
  Sender: GUARDIAN DRUG COMPANY
  Company Number: TR-Guardian Drug Company-2181778

PATIENT
  Age: 17 Year

DRUGS (3)
  1. CHILDRENS IBUPROFEN [Suspect]
     Active Substance: IBUPROFEN
     Indication: Product used for unknown indication
  2. FLURBIPROFEN [Suspect]
     Active Substance: FLURBIPROFEN
  3. METAMIZOLE [Suspect]
     Active Substance: METAMIZOLE

REACTIONS (3)
  - Angioedema [Unknown]
  - Cross sensitivity reaction [Unknown]
  - Urticaria [Unknown]
